FAERS Safety Report 5233904-0 (Version None)
Quarter: 2007Q1

REPORT INFORMATION
  Report Type: 
  Country: None (occurrence: None)
  Receive Date: 20070208
  Receipt Date: 20070131
  Transmission Date: 20070707
  Serious: Yes (Death, Hospitalization)
  Sender: FDA-Public Use
  Company Number: IT-JNJFOC-20070200207

PATIENT
  Sex: Male
  Weight: 10 kg

DRUGS (1)
  1. ANTALFEBAL BAMBINI  2 % [Suspect]
     Indication: NASOPHARYNGITIS

REACTIONS (1)
  - DISSEMINATED INTRAVASCULAR COAGULATION [None]
